FAERS Safety Report 14032504 (Version 3)
Quarter: 2017Q4

REPORT INFORMATION
  Report Type: Spontaneous
  Country: US (occurrence: US)
  Receive Date: 20171002
  Receipt Date: 20171221
  Transmission Date: 20180321
  Serious: Yes (Death, Life-Threatening, Hospitalization)
  Sender: FDA-Public Use
  Company Number: US-LPDUSPRD-20171321

PATIENT
  Age: 47 Year
  Sex: Male
  Weight: 96.9 kg

DRUGS (5)
  1. MIRCERA [Suspect]
     Active Substance: METHOXY POLYETHYLENE GLYCOL-EPOETIN BETA
     Dosage: 50 MCG (ONCE EVERY 2 WEEKS)
     Route: 040
     Dates: start: 20170906, end: 20170906
  2. HECTOROL [Concomitant]
     Active Substance: DOXERCALCIFEROL
     Dosage: 2 MCG, 3X WEEK (10 TOTAL)
     Route: 040
     Dates: start: 20170809, end: 20170906
  3. 0.9% NORMAL SALINE [Concomitant]
     Active Substance: SODIUM CHLORIDE
     Dosage: UNKNOWN
     Route: 065
  4. VENOFER [Suspect]
     Active Substance: IRON SUCROSE
     Dosage: 100 MG 10 TOTAL
     Route: 040
     Dates: start: 20170816, end: 20170906
  5. HEPARIN [Concomitant]
     Active Substance: HEPARIN SODIUM
     Dosage: 2000 IU
     Route: 040

REACTIONS (8)
  - Embolism [Unknown]
  - Pallor [Unknown]
  - Death [Fatal]
  - Dyspnoea [Unknown]
  - Pulmonary embolism [Unknown]
  - Haematoma [Unknown]
  - Hyperhidrosis [Unknown]
  - Loss of consciousness [Unknown]

NARRATIVE: CASE EVENT DATE: 2017
